FAERS Safety Report 26019736 (Version 1)
Quarter: 2025Q4

REPORT INFORMATION
  Report Type: Spontaneous
  Country: US (occurrence: US)
  Receive Date: 20251110
  Receipt Date: 20251110
  Transmission Date: 20260117
  Serious: No
  Sender: GALPHARM INTERNATIONAL
  Company Number: US-PERRIGO-24US009988

PATIENT
  Age: 79 Year
  Sex: Male
  Weight: 98.866 kg

DRUGS (3)
  1. POLYETHYLENE GLYCOL 3350 [Suspect]
     Active Substance: POLYETHYLENE GLYCOL 3350
     Indication: Product used for unknown indication
     Dosage: 17 G, QD
     Route: 048
     Dates: start: 20241015, end: 20241016
  2. POLYETHYLENE GLYCOL 3350 [Suspect]
     Active Substance: POLYETHYLENE GLYCOL 3350
     Dosage: 34 G, QD
     Route: 048
     Dates: start: 20241017, end: 20241018
  3. POLYETHYLENE GLYCOL 3350 [Suspect]
     Active Substance: POLYETHYLENE GLYCOL 3350
     Dosage: 51 G, QD
     Route: 048
     Dates: start: 20241019, end: 20241022

REACTIONS (3)
  - Drug ineffective [Unknown]
  - Incorrect product administration duration [Unknown]
  - Overdose [Unknown]

NARRATIVE: CASE EVENT DATE: 20241015
